FAERS Safety Report 12528208 (Version 3)
Quarter: 2016Q3

REPORT INFORMATION
  Report Type: Spontaneous
  Country: CN (occurrence: CN)
  Receive Date: 20160705
  Receipt Date: 20160726
  Transmission Date: 20161109
  Serious: Yes (Other)
  Sender: FDA-Public Use
  Company Number: CN-ASTRAZENECA-2016SE71971

PATIENT
  Sex: Female

DRUGS (1)
  1. IRESSA [Suspect]
     Active Substance: GEFITINIB
     Indication: ADENOCARCINOMA
     Route: 048
     Dates: start: 20160320

REACTIONS (5)
  - Somnolence [Unknown]
  - Dementia [Unknown]
  - Cerebral infarction [Unknown]
  - Memory impairment [Unknown]
  - Logorrhoea [Unknown]
